FAERS Safety Report 9575850 (Version 1)
Quarter: 2013Q4

REPORT INFORMATION
  Report Type: Spontaneous
  Country: US (occurrence: US)
  Receive Date: 20131001
  Receipt Date: 20131001
  Transmission Date: 20140711
  Serious: No
  Sender: FDA-Public Use
  Company Number: US-AMGEN-USASP2012057162

PATIENT
  Age: 56 Year
  Sex: Female
  Weight: 45.81 kg

DRUGS (3)
  1. PROCRIT [Suspect]
     Indication: HAEMOGLOBIN DECREASED
     Dosage: 40000 IU, QWK
     Route: 058
     Dates: start: 20120815
  2. PEGASYS [Concomitant]
     Indication: HEPATITIS C
     Dosage: 180 MG, QWK
     Route: 058
     Dates: start: 20120601
  3. RIBAVIRIN [Concomitant]
     Indication: HEPATITIS C
     Dosage: 600 MG, QD
     Route: 048
     Dates: start: 20120601, end: 20120817

REACTIONS (1)
  - Lip swelling [Not Recovered/Not Resolved]
